FAERS Safety Report 5385744-X (Version None)
Quarter: 2007Q3

REPORT INFORMATION
  Report Type: 
  Country: None (occurrence: None)
  Receive Date: 20070712
  Receipt Date: 20070703
  Transmission Date: 20080115
  Serious: Yes (Other)
  Sender: FDA-Public Use
  Company Number: HR-PFIZER INC-2007054815

PATIENT
  Sex: Male
  Weight: 82 kg

DRUGS (1)
  1. ACCUPRO [Suspect]
     Indication: ESSENTIAL HYPERTENSION
     Route: 048

REACTIONS (1)
  - HAEMORRHOIDAL HAEMORRHAGE [None]
